FAERS Safety Report 8468705-3 (Version None)
Quarter: 2012Q2

REPORT INFORMATION
  Report Type: 
  Country: None (occurrence: None)
  Receive Date: 20120619
  Receipt Date: 20120615
  Transmission Date: 20120825
  Serious: Yes (Death)
  Sender: FDA-Public Use
  Company Number: PD 163

PATIENT
  Age: 4 Year
  Sex: Female

DRUGS (2)
  1. TUSSIONEX [Suspect]
     Dosage: ORAL,HAL TEASPOON/DAY
  2. BENADRYL [Concomitant]

REACTIONS (2)
  - DRUG PRESCRIBING ERROR [None]
  - TOXICITY TO VARIOUS AGENTS [None]
